FAERS Safety Report 9179277 (Version 2)
Quarter: 2013Q1

REPORT INFORMATION
  Report Type: Spontaneous
  Country: US (occurrence: US)
  Receive Date: 20130321
  Receipt Date: 20130328
  Transmission Date: 20140127
  Serious: Yes (Other)
  Sender: FDA-Public Use
  Company Number: US-GILEAD-2013-0072079

PATIENT
  Sex: Female

DRUGS (3)
  1. LETAIRIS [Suspect]
     Indication: PULMONARY HYPERTENSION
     Dosage: 10 MG, QD
     Dates: start: 20110926
  2. LETAIRIS [Suspect]
     Indication: SCLERODERMA
  3. VENTAVIS [Concomitant]

REACTIONS (2)
  - Syncope [Unknown]
  - Dyspnoea [Unknown]
